FAERS Safety Report 9137723 (Version 1)
Quarter: 2013Q1

REPORT INFORMATION
  Report Type: Spontaneous
  Country: US (occurrence: US)
  Receive Date: 20130304
  Receipt Date: 20130304
  Transmission Date: 20140127
  Serious: No
  Sender: FDA-Public Use
  Company Number: US-ABBOTT-12P-163-0926099-00

PATIENT
  Sex: Male
  Weight: 108.96 kg

DRUGS (7)
  1. ANDROGEL 1% [Suspect]
     Indication: BLOOD TESTOSTERONE DECREASED
     Dates: start: 2011, end: 201204
  2. ANDROGEL 1.62% [Suspect]
     Indication: BLOOD TESTOSTERONE DECREASED
     Dates: start: 201204
  3. BUPROPION [Concomitant]
     Indication: DEPRESSION
  4. TERAZOSIN [Concomitant]
     Indication: PROSTATIC DISORDER
  5. CITALOPRAM [Concomitant]
     Indication: DEPRESSION
  6. TRAZODONE [Concomitant]
     Indication: DEPRESSION
  7. DEXTROAMP  ER [Concomitant]
     Indication: DEPRESSION

REACTIONS (1)
  - Drug ineffective [Not Recovered/Not Resolved]
